FAERS Safety Report 17883423 (Version 2)
Quarter: 2020Q2

REPORT INFORMATION
  Report Type: Report from Study
  Country: IT (occurrence: IT)
  Receive Date: 20200611
  Receipt Date: 20200616
  Transmission Date: 20200714
  Serious: Yes (Hospitalization)
  Sender: FDA-Public Use
  Company Number: IT-GLAXOSMITHKLINE-IT2020097194

PATIENT
  Age: 51 Year
  Sex: Male

DRUGS (4)
  1. DICLOFENAC SODIUM. [Suspect]
     Active Substance: DICLOFENAC SODIUM
     Indication: INTENTIONAL SELF-INJURY
     Dosage: ABUSE / MISUSE
     Route: 048
     Dates: start: 20200430, end: 20200430
  2. DIAZEPAM. [Suspect]
     Active Substance: DIAZEPAM
     Indication: INTENTIONAL SELF-INJURY
     Dosage: ABUSE/MISUSE
     Route: 065
     Dates: start: 20200430, end: 20200430
  3. CONTRAMAL [Suspect]
     Active Substance: TRAMADOL HYDROCHLORIDE
     Indication: INTENTIONAL SELF-INJURY
     Dosage: 10 DF, SINGLE
     Route: 048
     Dates: start: 20200430, end: 20200430
  4. AMOXICILLIN. [Suspect]
     Active Substance: AMOXICILLIN
     Indication: INTENTIONAL SELF-INJURY
     Dosage: ABUSE/MISUSE
     Route: 048
     Dates: start: 20200430, end: 20200430

REACTIONS (1)
  - Gastritis [Recovering/Resolving]

NARRATIVE: CASE EVENT DATE: 20200430
